FAERS Safety Report 13999346 (Version 2)
Quarter: 2017Q3

REPORT INFORMATION
  Report Type: Spontaneous
  Country: US (occurrence: US)
  Receive Date: 20170922
  Receipt Date: 20170922
  Transmission Date: 20171128
  Serious: Yes (Other)
  Sender: FDA-Public Use
  Company Number: US-GE HEALTHCARE LIFE SCIENCES-OSCN-PR-1311S-0118

PATIENT
  Age: 45 Year
  Sex: Female
  Weight: 74.1 kg

DRUGS (19)
  1. OMNISCAN [Suspect]
     Active Substance: GADODIAMIDE
     Dosage: UNK UNK, SINGLE
     Route: 042
     Dates: start: 20060526, end: 20060526
  2. OMNISCAN [Suspect]
     Active Substance: GADODIAMIDE
     Dosage: UNK UNK, SINGLE
     Route: 065
     Dates: start: 20060621, end: 20060621
  3. PREDNISONE. [Concomitant]
     Active Substance: PREDNISONE
  4. CELLCEPT [Concomitant]
     Active Substance: MYCOPHENOLATE MOFETIL\MYCOPHENOLATE MOFETIL HYDROCHLORIDE
  5. RENAGEL [Concomitant]
     Active Substance: SEVELAMER HYDROCHLORIDE
  6. OMNISCAN [Suspect]
     Active Substance: GADODIAMIDE
     Indication: DEEP VEIN THROMBOSIS
     Dosage: 60 ML, SINGLE
     Route: 065
     Dates: start: 20050427, end: 20050427
  7. MAGNEVIST [Suspect]
     Active Substance: GADOPENTETATE DIMEGLUMINE
     Indication: SPLENIC LESION
     Dosage: UNK UNK, SINGLE
     Route: 042
     Dates: start: 20010116, end: 20010116
  8. SODIUM BICARBONATE. [Concomitant]
     Active Substance: SODIUM BICARBONATE
  9. COUMADIN [Concomitant]
     Active Substance: WARFARIN SODIUM
  10. LEVOTHROID [Concomitant]
     Active Substance: LEVOTHYROXINE SODIUM
  11. OMNISCAN [Suspect]
     Active Substance: GADODIAMIDE
     Dosage: 20 ML, SINGLE
     Route: 065
     Dates: start: 20060610, end: 20060610
  12. CALCITRIOL. [Concomitant]
     Active Substance: CALCITRIOL
  13. SYNTHROID [Concomitant]
     Active Substance: LEVOTHYROXINE SODIUM
  14. PHOSLO [Concomitant]
     Active Substance: CALCIUM ACETATE
  15. OMNISCAN [Suspect]
     Active Substance: GADODIAMIDE
     Dosage: 60 ML, SINGLE
     Route: 065
     Dates: start: 20050504, end: 20050504
  16. EPOGEN [Concomitant]
     Active Substance: ERYTHROPOIETIN
  17. OMNISCAN [Suspect]
     Active Substance: GADODIAMIDE
     Dosage: 20 ML, SINGLE
     Route: 065
     Dates: start: 20060427, end: 20060427
  18. ARANESP [Concomitant]
     Active Substance: DARBEPOETIN ALFA
  19. NEPHROCAPS                         /01801401/ [Concomitant]

REACTIONS (1)
  - Nephrogenic systemic fibrosis [Not Recovered/Not Resolved]

NARRATIVE: CASE EVENT DATE: 20050707
